FAERS Safety Report 20237088 (Version 1)
Quarter: 2021Q4

REPORT INFORMATION
  Report Type: Spontaneous
  Country: ES (occurrence: ES)
  Receive Date: 20211228
  Receipt Date: 20211228
  Transmission Date: 20220303
  Serious: Yes (Hospitalization)
  Sender: FDA-Public Use
  Company Number: ES-MYLANLABS-2021M1095807

PATIENT
  Age: 6 Decade
  Sex: Female

DRUGS (2)
  1. OLANZAPINE [Suspect]
     Active Substance: OLANZAPINE
     Indication: Schizophrenia
     Dosage: 300 MILLIGRAM, Q2W (DEPOT; PER TWO WEEKS)
     Route: 030
  2. OLANZAPINE [Suspect]
     Active Substance: OLANZAPINE
     Dosage: 405 MILLIGRAM, Q2W (DEPOT; PER TWO WEEKS)
     Route: 030

REACTIONS (1)
  - Post-injection delirium sedation syndrome [Recovering/Resolving]
